FAERS Safety Report 4717569-X (Version None)
Quarter: 2005Q3

REPORT INFORMATION
  Report Type: 
  Country: None (occurrence: None)
  Receive Date: 20050712
  Receipt Date: 20050329
  Transmission Date: 20060218
  Serious: No
  Sender: FDA-Public Use
  Company Number: 2005S1000119

PATIENT
  Age: 21 Year
  Sex: Male

DRUGS (35)
  1. CUBICIN [Suspect]
     Indication: AORTIC VALVE DISEASE
     Dosage: 400 MG;Q48H;IV
     Route: 042
     Dates: start: 20040817
  2. CUBICIN [Suspect]
     Indication: ENDOCARDITIS STAPHYLOCOCCAL
     Dosage: 400 MG;Q48H;IV
     Route: 042
     Dates: start: 20040817
  3. METOPROLOL [Concomitant]
  4. DILTIAZEM [Concomitant]
  5. SODIUM NITROPRUSSIDE [Concomitant]
  6. NOREPINEPHRINE [Concomitant]
  7. HYDRALAZINE [Concomitant]
  8. DESMOPRESSIN [Concomitant]
  9. MANNITOL [Concomitant]
  10. HEPARIN [Concomitant]
  11. WARFARIN [Concomitant]
  12. PROTAMINE [Concomitant]
  13. FAMOTIDINE [Concomitant]
  14. ONDANSETRON [Concomitant]
  15. PROCHLORPERAZINE [Concomitant]
  16. SIMETHICONE [Concomitant]
  17. ACETAMINOPHEN [Concomitant]
  18. ALBUMIN (HUMAN) [Concomitant]
  19. PARACALCITOL [Concomitant]
  20. EPOETIN ALFA [Concomitant]
  21. POTASSIUM CHLORIDE [Concomitant]
  22. MAGNESIUM SULFATE [Concomitant]
  23. CALCIUM ACETATE [Concomitant]
  24. FERRLECIT [Concomitant]
  25. RIFAMPIN [Concomitant]
  26. VANCOMYCIN [Concomitant]
  27. GENTAMICIN [Concomitant]
  28. DIPHENHYDRAMINE HCL [Concomitant]
  29. FENTANYL [Concomitant]
  30. HYDROMORPHONE HCL [Concomitant]
  31. PERCOCET [Concomitant]
  32. NALOXONE [Concomitant]
  33. FLUOXETINE [Concomitant]
  34. SENOKOT [Concomitant]
  35. SODIUM POLYSTYRENE [Concomitant]

REACTIONS (1)
  - INTERNATIONAL NORMALISED RATIO INCREASED [None]
